FAERS Safety Report 8177885-9 (Version None)
Quarter: 2012Q1

REPORT INFORMATION
  Report Type: 
  Country: None (occurrence: None)
  Receive Date: 20120301
  Receipt Date: 20120223
  Transmission Date: 20120608
  Serious: Yes (Hospitalization, Other)
  Sender: FDA-Public Use
  Company Number: US-BAYER-2011-067897

PATIENT
  Age: 28 Year
  Sex: Female
  Weight: 52 kg

DRUGS (6)
  1. CALCIUM [Concomitant]
     Dosage: UNK UNK, QD
     Route: 048
  2. YASMIN [Suspect]
     Indication: CONTRACEPTION
     Dosage: UNK
     Dates: start: 20060902, end: 20080607
  3. GINGER [Concomitant]
  4. FISH OIL [Concomitant]
  5. ASCORBIC ACID [Concomitant]
     Dosage: UNK, QD
     Route: 048
  6. DROSPIRENONE AND ETHINYL ESTRADIOL [Suspect]
     Indication: CONTRACEPTION
     Dosage: UNK
     Dates: start: 20080704, end: 20100208

REACTIONS (7)
  - ABDOMINAL PAIN LOWER [None]
  - CHOLECYSTITIS CHRONIC [None]
  - GALLBLADDER DISORDER [None]
  - ABDOMINAL PAIN UPPER [None]
  - PAIN [None]
  - BILE OUTPUT ABNORMAL [None]
  - GALLBLADDER INJURY [None]
